FAERS Safety Report 8180761-9 (Version None)
Quarter: 2012Q1

REPORT INFORMATION
  Report Type: 
  Country: None (occurrence: None)
  Receive Date: 20120301
  Receipt Date: 20120301
  Transmission Date: 20120608
  Serious: No
  Sender: FDA-Public Use
  Company Number: None

PATIENT
  Age: 61 Year
  Sex: Female
  Weight: 78.4723 kg

DRUGS (2)
  1. CIPROFLOXACIN HYDROCHLORIDE [Suspect]
     Indication: URINARY TRACT INFECTION
     Dosage: ONE TABLET EVER 12 HRS EVERY 12HR
     Dates: start: 20111001, end: 20111101
  2. SULFAMETHOXAZOLE AND TRIMETHOPRIM [Suspect]
     Indication: URINARY TRACT INFECTION
     Dosage: ONE TABLET - 12 HOURS EVERY 12 HR
     Dates: start: 20110701, end: 20110801

REACTIONS (18)
  - INSOMNIA [None]
  - OCULAR HYPERAEMIA [None]
  - SENSATION OF FOREIGN BODY [None]
  - FATIGUE [None]
  - URINARY TRACT INFECTION [None]
  - IMPAIRED DRIVING ABILITY [None]
  - PYREXIA [None]
  - CHILLS [None]
  - PAIN IN EXTREMITY [None]
  - MUSCULAR WEAKNESS [None]
  - MYALGIA [None]
  - NECK PAIN [None]
  - ASTHENIA [None]
  - HEADACHE [None]
  - JOINT RANGE OF MOTION DECREASED [None]
  - ACTIVITIES OF DAILY LIVING IMPAIRED [None]
  - MUSCULOSKELETAL PAIN [None]
  - PAIN [None]
